FAERS Safety Report 9376439 (Version 1)
Quarter: 2013Q3

REPORT INFORMATION
  Report Type: Spontaneous
  Country: DE (occurrence: DE)
  Receive Date: 20130701
  Receipt Date: 20130701
  Transmission Date: 20140515
  Serious: Yes (Hospitalization)
  Sender: FDA-Public Use
  Company Number: DE-BAYER-2013-071895

PATIENT
  Age: 55 Year
  Sex: Female
  Weight: 70 kg

DRUGS (1)
  1. BETAFERON [Suspect]
     Indication: MULTIPLE SCLEROSIS
     Dosage: UNK
     Dates: start: 200001, end: 20130530

REACTIONS (6)
  - Appendicitis [Recovering/Resolving]
  - Abdominal adhesions [Recovering/Resolving]
  - Colitis [Recovering/Resolving]
  - Injection site abscess [None]
  - Abdominal pain lower [None]
  - Muscle necrosis [None]
